FAERS Safety Report 7226806-1 (Version None)
Quarter: 2011Q1

REPORT INFORMATION
  Report Type: 
  Country: None (occurrence: None)
  Receive Date: 20110114
  Receipt Date: 20100105
  Transmission Date: 20110831
  Serious: Yes (Other)
  Sender: FDA-Public Use
  Company Number: IT-TEVA-262497ISR

PATIENT
  Sex: Male

DRUGS (2)
  1. GEMCITABINE [Suspect]
     Route: 042
     Dates: start: 20101103, end: 20101103
  2. FLUOROURACIL [Suspect]
     Route: 042
     Dates: start: 20101110, end: 20101110

REACTIONS (1)
  - LEUKOCYTOCLASTIC VASCULITIS [None]
